FAERS Safety Report 8117110-8 (Version None)
Quarter: 2012Q1

REPORT INFORMATION
  Report Type: 
  Country: None (occurrence: None)
  Receive Date: 20120206
  Receipt Date: 20120130
  Transmission Date: 20120608
  Serious: Yes (Other)
  Sender: FDA-Public Use
  Company Number: US-PFIZER INC-2012025861

PATIENT
  Sex: Male
  Weight: 67 kg

DRUGS (2)
  1. AZITHROMYCIN [Suspect]
     Indication: URETHRITIS CHLAMYDIAL
     Dosage: 1 G, 1X/DAY
     Dates: start: 20111120, end: 20111120
  2. CEFTRIAXONE SODIUM [Suspect]
     Indication: URETHRITIS CHLAMYDIAL
     Dosage: 250 MG, 1X/DAY
     Dates: start: 20111120, end: 20111120

REACTIONS (2)
  - DRUG INEFFECTIVE [None]
  - DRUG RESISTANCE [None]
